FAERS Safety Report 5149118-9 (Version None)
Quarter: 2006Q4

REPORT INFORMATION
  Report Type: 
  Country: None (occurrence: None)
  Receive Date: 20061113
  Receipt Date: 20060731
  Transmission Date: 20070319
  Serious: No
  Sender: FDA-Public Use
  Company Number: US-GLAXOSMITHKLINE-A0614190A

PATIENT
  Age: 72 Year
  Sex: Female

DRUGS (3)
  1. COREG [Suspect]
     Route: 048
     Dates: start: 20040101
  2. LIPITOR [Suspect]
     Dates: start: 20060601
  3. NO CONCURRENT MEDICATION [Concomitant]

REACTIONS (1)
  - CONTUSION [None]
